FAERS Safety Report 6393978-0 (Version None)
Quarter: 2009Q4

REPORT INFORMATION
  Report Type: 
  Country: None (occurrence: None)
  Receive Date: 20091008
  Receipt Date: 20090721
  Transmission Date: 20100525
  Serious: No
  Sender: FDA-Public Use
  Company Number: US-BRISTOL-MYERS SQUIBB COMPANY-14696173

PATIENT
  Age: 58 Year
  Sex: Female

DRUGS (1)
  1. MEGACE [Suspect]
     Indication: ENDOMETRIAL CANCER
     Route: 048
     Dates: start: 20070726

REACTIONS (1)
  - BLOOD TRIGLYCERIDES INCREASED [None]
